FAERS Safety Report 17423436 (Version 1)
Quarter: 2020Q1

REPORT INFORMATION
  Report Type: Spontaneous
  Country: US (occurrence: US)
  Receive Date: 20200131
  Receipt Date: 20200131
  Transmission Date: 20200409
  Serious: No
  Sender: FDA-Public Use
  Company Number: None

PATIENT

DRUGS (2)
  1. VECURONIUM BROMIDE. [Suspect]
     Active Substance: VECURONIUM BROMIDE
     Route: 042
  2. CAFFEINE CITRATE. [Suspect]
     Active Substance: CAFFEINE CITRATE
     Route: 042

REACTIONS (4)
  - Wrong product stored [None]
  - Product appearance confusion [None]
  - Intercepted product selection error [None]
  - Product barcode issue [None]
